FAERS Safety Report 9440464 (Version 2)
Quarter: 2013Q3

REPORT INFORMATION
  Report Type: Report from Study
  Country: CA (occurrence: CA)
  Receive Date: 20130805
  Receipt Date: 20130814
  Transmission Date: 20140515
  Serious: Yes (Other)
  Sender: FDA-Public Use
  Company Number: CA-PFIZER INC-2013218103

PATIENT
  Age: 81 Year
  Sex: Male
  Weight: 82 kg

DRUGS (4)
  1. TOFACITINIB CITRATE [Suspect]
     Indication: PSORIASIS
     Dosage: 10 MG, 2X/DAY
     Route: 048
     Dates: start: 20120208, end: 20130724
  2. TELMISARTAN [Concomitant]
     Indication: HYPERTENSION
     Dosage: UNK
     Dates: start: 201010
  3. AMLODIPINE [Concomitant]
     Indication: HYPERTENSION
     Dosage: UNK
     Dates: start: 201010
  4. ACETYLSALICYLIC ACID [Concomitant]
     Indication: PROPHYLAXIS
     Dosage: UNK
     Dates: start: 2000, end: 20130719

REACTIONS (1)
  - Transient ischaemic attack [Recovered/Resolved]
